FAERS Safety Report 10220258 (Version 3)
Quarter: 2014Q2

REPORT INFORMATION
  Report Type: Report from Study
  Country: DK (occurrence: DK)
  Receive Date: 20140606
  Receipt Date: 20140620
  Transmission Date: 20141212
  Serious: No
  Sender: FDA-Public Use
  Company Number: DK-AMGEN INC.-DNKCT2014041533

PATIENT
  Sex: Female

DRUGS (2)
  1. ETANERCEPT [Suspect]
     Indication: PRODUCT USED FOR UNKNOWN INDICATION
     Dosage: 50 MG, QWK
     Route: 065
     Dates: start: 20131103, end: 20140307
  2. METHOTREXATE [Concomitant]
     Dosage: UNK
     Route: 048

REACTIONS (1)
  - Dermatitis [Recovered/Resolved]
